FAERS Safety Report 8869235 (Version 1)
Quarter: 2012Q4

REPORT INFORMATION
  Report Type: 
  Country: US (occurrence: US)
  Receive Date: 20121023
  Receipt Date: 20121023
  Transmission Date: 20130627
  Serious: No
  Sender: FDA-Public Use
  Company Number: US-AMGEN-USASP2012053408

PATIENT
  Age: 35 Year
  Sex: Female
  Weight: 65.76 kg

DRUGS (7)
  1. ENBREL [Suspect]
     Indication: PRODUCT USED FOR UNKNOWN INDICATION
     Dosage: 50 mg, qwk
     Route: 058
  2. RESTASIS [Concomitant]
     Dosage: 0.05 %, UNK
  3. METHOTREXATE [Concomitant]
     Dosage: 2.5 mg, UNK
  4. PROVIGIL [Concomitant]
     Dosage: 100 mg, UNK
  5. FOLIC ACID [Concomitant]
  6. CYMBALTA [Concomitant]
     Dosage: 20 mg, UNK
  7. CYCLOBENZAPRINE [Concomitant]
     Dosage: 10 mg, UNK

REACTIONS (2)
  - Injection site rash [Unknown]
  - Injection site induration [Unknown]
